FAERS Safety Report 8194615-5 (Version None)
Quarter: 2012Q1

REPORT INFORMATION
  Report Type: 
  Country: None (occurrence: None)
  Receive Date: 20120308
  Receipt Date: 20111010
  Transmission Date: 20120608
  Serious: No
  Sender: FDA-Public Use
  Company Number: US-GLAXOSMITHKLINE-A0948428A

PATIENT
  Age: 39 Year
  Sex: Female

DRUGS (2)
  1. NICORETTE [Suspect]
     Indication: EX-TOBACCO USER
     Dates: start: 20111007, end: 20111009
  2. NICORETTE (MINT) [Suspect]
     Indication: EX-TOBACCO USER
     Dates: start: 20111007, end: 20111009

REACTIONS (7)
  - HYPERSENSITIVITY [None]
  - THERMAL BURN [None]
  - GLOSSITIS [None]
  - DYSPHONIA [None]
  - RASH PAPULAR [None]
  - DIZZINESS [None]
  - DRUG ADMINISTRATION ERROR [None]
